FAERS Safety Report 14828612 (Version 1)
Quarter: 2018Q2

REPORT INFORMATION
  Report Type: Spontaneous
  Country: US (occurrence: US)
  Receive Date: 20180418
  Receipt Date: 20180418
  Transmission Date: 20180711
  Serious: Yes (Hospitalization)
  Sender: FDA-Public Use
  Company Number: None

PATIENT
  Age: 43 Year

DRUGS (7)
  1. HYOSCYAMINE. [Concomitant]
     Active Substance: HYOSCYAMINE
  2. NITROFURAT [Concomitant]
  3. HYDROCO/APAP [Concomitant]
     Active Substance: ACETAMINOPHEN\HYDROCODONE
  4. DOK [Concomitant]
     Active Substance: DOCUSATE SODIUM
  5. METRONIDAZOLE. [Concomitant]
     Active Substance: METRONIDAZOLE
  6. CROMOLYN 100MG/5ML [Suspect]
     Active Substance: CROMOLYN
     Route: 048
     Dates: start: 20180224
  7. ONDANSETRON [Concomitant]
     Active Substance: ONDANSETRON

REACTIONS (2)
  - Appendicectomy [None]
  - Drug dose omission [None]

NARRATIVE: CASE EVENT DATE: 201803
